FAERS Safety Report 5227204-2 (Version None)
Quarter: 2007Q1

REPORT INFORMATION
  Report Type: 
  Country: None (occurrence: None)
  Receive Date: 20070202
  Receipt Date: 20070131
  Transmission Date: 20070707
  Serious: Yes (Other)
  Sender: FDA-Public Use
  Company Number: GB-GLAXOSMITHKLINE-B0441860A

PATIENT
  Age: 30 Year
  Sex: Male
  Weight: 73 kg

DRUGS (3)
  1. KIVEXA [Suspect]
     Indication: DRUG USE FOR UNKNOWN INDICATION
     Route: 048
     Dates: start: 20060915
  2. ALCOHOL [Suspect]
  3. NEVIRAPINE [Concomitant]
     Dosage: 400MG PER DAY
     Route: 048
     Dates: start: 20010903

REACTIONS (5)
  - ALCOHOL INTERACTION [None]
  - FLUSHING [None]
  - NAUSEA [None]
  - PALPITATIONS [None]
  - TACHYCARDIA [None]
